FAERS Safety Report 11056342 (Version 1)
Quarter: 2015Q2

REPORT INFORMATION
  Report Type: Spontaneous
  Country: TR (occurrence: TR)
  Receive Date: 20150422
  Receipt Date: 20150422
  Transmission Date: 20150821
  Serious: Yes (Hospitalization)
  Sender: FDA-Public Use
  Company Number: TR-MYLANLABS-2015M1013292

PATIENT

DRUGS (2)
  1. METHYLPREDNISOLONE. [Suspect]
     Active Substance: METHYLPREDNISOLONE
     Indication: NON-HODGKIN^S LYMPHOMA
     Dosage: 80 MG/DAY
     Route: 048
  2. DEXAMETHASONE. [Suspect]
     Active Substance: DEXAMETHASONE
     Indication: NON-HODGKIN^S LYMPHOMA
     Dosage: 20 MG/DAY
     Route: 048

REACTIONS (2)
  - Suicide attempt [Unknown]
  - Major depression [Recovering/Resolving]
